FAERS Safety Report 5787245-3 (Version None)
Quarter: 2008Q2

REPORT INFORMATION
  Report Type: 
  Country: None (occurrence: None)
  Receive Date: 20080623
  Receipt Date: 20080623
  Transmission Date: 20081010
  Serious: Yes (Other)
  Sender: FDA-Public Use
  Company Number: None

PATIENT
  Age: 41 Year
  Sex: Female
  Weight: 83.9154 kg

DRUGS (1)
  1. SINGULAIR [Suspect]
     Indication: ALOPECIA
     Dosage: 1 TABLET ONCE A DAY PO
     Route: 048
     Dates: start: 20080115, end: 20080610

REACTIONS (1)
  - ALOPECIA [None]
